FAERS Safety Report 23594200 (Version 1)
Quarter: 2024Q1

REPORT INFORMATION
  Report Type: Report from Study
  Country: US (occurrence: US)
  Receive Date: 20240305
  Receipt Date: 20240305
  Transmission Date: 20240409
  Serious: Yes (Other)
  Sender: FDA-Public Use
  Company Number: US-TEVA-VS-3164098

PATIENT
  Sex: Female

DRUGS (6)
  1. AUSTEDO [Suspect]
     Active Substance: DEUTETRABENAZINE
     Indication: Tardive dyskinesia
     Route: 048
  2. AUSTEDO [Suspect]
     Active Substance: DEUTETRABENAZINE
     Indication: Tardive dyskinesia
     Route: 048
  3. AMITRIPTYLINE [Concomitant]
     Active Substance: AMITRIPTYLINE
  4. Isosorbide D [Concomitant]
  5. Oxycodone HC [Concomitant]
  6. Trazodone HC [Concomitant]

REACTIONS (9)
  - Swollen tongue [Unknown]
  - Speech disorder [Unknown]
  - Fatigue [Unknown]
  - Insomnia [Unknown]
  - Sleep disorder [Unknown]
  - Disturbance in attention [Unknown]
  - Restlessness [Unknown]
  - Limb discomfort [Unknown]
  - Depression [Unknown]
